FAERS Safety Report 5774247-6 (Version None)
Quarter: 2008Q2

REPORT INFORMATION
  Report Type: 
  Country: None (occurrence: None)
  Receive Date: 20080616
  Receipt Date: 20080311
  Transmission Date: 20081010
  Serious: Yes (Hospitalization)
  Sender: FDA-Public Use
  Company Number: US-BAYER-200820111GPV

PATIENT
  Age: 12 Year
  Sex: Female

DRUGS (2)
  1. ASPIRIN [Suspect]
     Indication: UNEVALUABLE EVENT
     Route: 065
  2. EPINEPHRINE [Suspect]
     Indication: ANAPHYLACTIC REACTION

REACTIONS (5)
  - ABDOMINAL PAIN [None]
  - ANAPHYLACTIC REACTION [None]
  - HYPOTENSION [None]
  - RESPIRATORY DISTRESS [None]
  - URTICARIA [None]
